FAERS Safety Report 9189835 (Version 2)
Quarter: 2013Q2

REPORT INFORMATION
  Report Type: Spontaneous
  Country: US (occurrence: US)
  Receive Date: 20130326
  Receipt Date: 20130425
  Transmission Date: 20140414
  Serious: Yes (Death, Hospitalization)
  Sender: FDA-Public Use
  Company Number: US-PFIZER INC-2013096148

PATIENT
  Age: 85 Year
  Sex: Male

DRUGS (21)
  1. SUTENT [Suspect]
     Indication: RENAL CELL CARCINOMA
     Dosage: 25 MG, UNK
     Route: 048
     Dates: start: 20130129
  2. ALBUTEROL SULFATE [Concomitant]
     Dosage: UNK
  3. ALLOPURINOL [Concomitant]
     Dosage: UNK
  4. CALCIUM 500+ D [Concomitant]
     Dosage: UNK
  5. CIMETIDINE [Concomitant]
     Dosage: UNK
  6. COLCHICINE [Concomitant]
     Dosage: UNK
  7. COMBIVENT [Concomitant]
     Dosage: UNK
  8. DORZOLAMIDE HYDROCHLORIDE/TIMOLOL MALEATE [Concomitant]
     Dosage: UNK
  9. DUONEB [Concomitant]
     Dosage: UNK
  10. FINASTERIDE [Concomitant]
     Dosage: UNK
  11. HYDROCODONE W/ACETAMINOPHEN [Concomitant]
     Dosage: UNK
  12. LORAZEPAM [Concomitant]
     Dosage: UNK
  13. MIRALAX [Concomitant]
     Dosage: UNK
  14. OMEGA 3 [Concomitant]
     Dosage: UNK
  15. POTASSIUM CHLORIDE [Concomitant]
     Dosage: UNK
  16. PREDNISONE [Concomitant]
     Dosage: UNK
  17. PROCHLORPERAZINE MALEATE [Concomitant]
     Dosage: UNK
  18. TAMSULOSIN HYDROCHLORIDE [Concomitant]
     Dosage: UNK
  19. TRAVATAN [Concomitant]
     Dosage: UNK
  20. TRIAMCINOLONE ACETONIDE [Concomitant]
     Dosage: UNK
  21. STOOL SOFTENER [Concomitant]
     Dosage: UNK

REACTIONS (2)
  - Death [Fatal]
  - Gastric disorder [Unknown]
